FAERS Safety Report 24271538 (Version 1)
Quarter: 2024Q3

REPORT INFORMATION
  Report Type: Spontaneous
  Country: CN (occurrence: CN)
  Receive Date: 20240901
  Receipt Date: 20240901
  Transmission Date: 20241016
  Serious: Yes (Other)
  Sender: JIANGSU HENGRUI MEDICINE
  Company Number: CN-Jiangsu Hengrui Medicine Co., Ltd.-2161080

PATIENT
  Age: 45 Year
  Sex: Female
  Weight: 49 kg

DRUGS (1)
  1. DOCETAXEL [Suspect]
     Active Substance: DOCETAXEL\DOCETAXEL ANHYDROUS
     Indication: Ovarian cancer
     Route: 041

REACTIONS (8)
  - Skin necrosis [Recovering/Resolving]
  - Product use in unapproved indication [Unknown]
  - Blister [Recovering/Resolving]
  - Rash [Recovering/Resolving]
  - Phlebitis [Recovering/Resolving]
  - Complex regional pain syndrome [Recovering/Resolving]
  - Injection site oedema [Recovering/Resolving]
  - Administration site extravasation [Recovering/Resolving]
